FAERS Safety Report 7638131-5 (Version None)
Quarter: 2011Q3

REPORT INFORMATION
  Report Type: 
  Country: None (occurrence: None)
  Receive Date: 20110722
  Receipt Date: 20110722
  Transmission Date: 20111222
  Serious: Yes (Hospitalization)
  Sender: FDA-Public Use
  Company Number: None

PATIENT
  Sex: Female
  Weight: 61.55 kg

DRUGS (2)
  1. CISPLATIN [Suspect]
     Dosage: 80.5 MG
  2. PEMETREXED [Suspect]
     Dosage: 805 MG

REACTIONS (8)
  - FATIGUE [None]
  - TACHYCARDIA [None]
  - DECREASED APPETITE [None]
  - ELECTROLYTE DEPLETION [None]
  - DEHYDRATION [None]
  - ABSCESS [None]
  - NAUSEA [None]
  - FISTULA [None]
